FAERS Safety Report 22178484 (Version 4)
Quarter: 2024Q3

REPORT INFORMATION
  Report Type: Spontaneous
  Country: US (occurrence: US)
  Receive Date: 20230405
  Receipt Date: 20240710
  Transmission Date: 20241017
  Serious: No
  Sender: PFIZER
  Company Number: US-PFIZER INC-PV202300062139

PATIENT
  Age: 68 Year
  Sex: Female
  Weight: 78 kg

DRUGS (2)
  1. IBRANCE [Suspect]
     Active Substance: PALBOCICLIB
     Dosage: 125 MG
     Dates: start: 20201020
  2. IBRANCE [Suspect]
     Active Substance: PALBOCICLIB
     Dosage: 125 MG/ DAY 3 WEEKS ON 1 WEEK OFF WAS ORDERED.
     Dates: start: 20231218

REACTIONS (4)
  - Neoplasm progression [Unknown]
  - Dizziness [Unknown]
  - Fatigue [Unknown]
  - Cancer pain [Unknown]
